FAERS Safety Report 4388189-4 (Version None)
Quarter: 2004Q3

REPORT INFORMATION
  Report Type: 
  Country: None (occurrence: None)
  Receive Date: 20040701
  Receipt Date: 20040210
  Transmission Date: 20050211
  Serious: Yes (Life-Threatening, Hospitalization, Other)
  Sender: FDA-Public Use
  Company Number: PHNU2004DE00864

PATIENT
  Age: 50 Year
  Sex: Male

DRUGS (3)
  1. LAMISIL [Suspect]
     Indication: NAIL TINEA
     Dosage: 250 MG, QD
     Route: 048
     Dates: start: 20031217, end: 20031230
  2. CO-DIOVAN [Concomitant]
     Dates: start: 20020101
  3. LAMISIL [Concomitant]

REACTIONS (36)
  - ALANINE AMINOTRANSFERASE INCREASED [None]
  - ASPARTATE AMINOTRANSFERASE INCREASED [None]
  - BILIRUBIN CONJUGATED INCREASED [None]
  - BLOOD AMYLASE INCREASED [None]
  - BLOOD BILIRUBIN INCREASED [None]
  - BLOOD GLUCOSE INCREASED [None]
  - BLOOD IRON ABNORMAL [None]
  - BLOOD IRON INCREASED [None]
  - BLOOD LACTATE DEHYDROGENASE INCREASED [None]
  - BLOOD TRIGLYCERIDES INCREASED [None]
  - C-REACTIVE PROTEIN INCREASED [None]
  - DECREASED APPETITE [None]
  - EPSTEIN-BARR VIRUS ANTIBODY POSITIVE [None]
  - FATIGUE [None]
  - GAMMA-GLUTAMYLTRANSFERASE INCREASED [None]
  - GASTRIC MUCOSAL LESION [None]
  - GASTRITIS [None]
  - GASTROINTESTINAL MUCOSAL DISORDER [None]
  - GENERAL PHYSICAL HEALTH DETERIORATION [None]
  - GLUTAMATE DEHYDROGENASE INCREASED [None]
  - HAEMOCHROMATOSIS [None]
  - HEADACHE [None]
  - HELICOBACTER GASTRITIS [None]
  - HEPATOCELLULAR DAMAGE [None]
  - HERPES SIMPLEX SEROLOGY POSITIVE [None]
  - INFLUENZA LIKE ILLNESS [None]
  - JAUNDICE [None]
  - LIPASE INCREASED [None]
  - LIVER DISORDER [None]
  - PAIN IN EXTREMITY [None]
  - PANCREATIC DISORDER [None]
  - PLATELET COUNT INCREASED [None]
  - PROTHROMBIN TIME SHORTENED [None]
  - PYREXIA [None]
  - SERUM FERRITIN INCREASED [None]
  - URINE AMYLASE INCREASED [None]
